FAERS Safety Report 10089834 (Version 1)
Quarter: 2014Q2

REPORT INFORMATION
  Report Type: Report from Study
  Country: US (occurrence: US)
  Receive Date: 20140421
  Receipt Date: 20140421
  Transmission Date: 20141212
  Serious: Yes (Other)
  Sender: FDA-Public Use
  Company Number: PHEH2014US007752

PATIENT
  Age: 15 Year
  Sex: Female
  Weight: 52.15 kg

DRUGS (1)
  1. TOBI PODHALER [Suspect]
     Indication: CYSTIC FIBROSIS
     Dosage: 112 MG, TWICE A DAY
     Route: 055
     Dates: start: 201312, end: 201404

REACTIONS (4)
  - Pulmonary haemorrhage [Not Recovered/Not Resolved]
  - Hepatic vein dilatation [Not Recovered/Not Resolved]
  - Weight decreased [Not Recovered/Not Resolved]
  - Cough [Not Recovered/Not Resolved]
